FAERS Safety Report 4922666-X (Version None)
Quarter: 2006Q1

REPORT INFORMATION
  Report Type: 
  Country: None (occurrence: None)
  Receive Date: 20060224
  Receipt Date: 20050307
  Transmission Date: 20060701
  Serious: Yes (Hospitalization, Disabling)
  Sender: FDA-Public Use
  Company Number: JP-ABBOTT-05P-087-0293194-00

PATIENT
  Age: 22 Year
  Sex: Female

DRUGS (17)
  1. CLARITHROMYCIN [Suspect]
     Indication: MYCOBACTERIUM AVIUM COMPLEX INFECTION
     Route: 048
     Dates: start: 20030205, end: 20050322
  2. ZIDOVUDINE [Suspect]
     Indication: HIV INFECTION
     Route: 048
     Dates: start: 20030806, end: 20031118
  3. ZIDOVUDINE [Suspect]
     Route: 048
     Dates: start: 20021002, end: 20030214
  4. DIDANOSINE [Suspect]
     Indication: HIV INFECTION
     Route: 048
     Dates: start: 20030806, end: 20031118
  5. DIDANOSINE [Suspect]
     Route: 048
     Dates: start: 20021002, end: 20030214
  6. LAMIVUDINE [Suspect]
     Indication: HIV INFECTION
     Route: 048
     Dates: start: 20050323
  7. STAVUDINE [Suspect]
     Indication: HIV INFECTION
     Route: 048
     Dates: start: 20031119, end: 20040302
  8. NELFINAVIR MESILATE [Suspect]
     Indication: HIV INFECTION
     Route: 048
     Dates: start: 20030806, end: 20040127
  9. NELFINAVIR MESILATE [Suspect]
     Route: 048
     Dates: start: 20040128, end: 20040302
  10. DIDANOSINE [Concomitant]
     Route: 048
     Dates: start: 20040303, end: 20050322
  11. AZITHROMYCIN [Concomitant]
     Indication: MYCOBACTERIUM AVIUM COMPLEX INFECTION
     Route: 048
     Dates: start: 20030122, end: 20030204
  12. AZITHROMYCIN [Concomitant]
     Dates: start: 20050323
  13. KALETRA [Concomitant]
     Indication: HIV INFECTION
     Route: 048
     Dates: start: 20021002
  14. ABACAVIR SULFATE [Concomitant]
     Indication: HIV INFECTION
     Route: 048
     Dates: start: 20040303
  15. BACTRIM [Concomitant]
     Indication: INFECTION PROPHYLAXIS
     Route: 048
     Dates: start: 20030401
  16. ETHANBUTOL HYDROCHLORIDE [Concomitant]
     Indication: MYCOBACTERIUM AVIUM COMPLEX INFECTION
     Route: 048
     Dates: start: 20030401, end: 20050322
  17. RIFABUTIN [Concomitant]
     Indication: MYCOBACTERIUM AVIUM COMPLEX INFECTION
     Route: 048
     Dates: start: 20030401, end: 20050322

REACTIONS (8)
  - ANAEMIA [None]
  - BLOOD TRIGLYCERIDES INCREASED [None]
  - CERVICAL DYSPLASIA [None]
  - DIFFICULTY IN WALKING [None]
  - HERPES SIMPLEX [None]
  - LEUKOPENIA [None]
  - RECTAL DISCHARGE [None]
  - URETHRAL DISCHARGE [None]
